FAERS Safety Report 7292927-0 (Version None)
Quarter: 2011Q1

REPORT INFORMATION
  Report Type: 
  Country: None (occurrence: None)
  Receive Date: 20110215
  Receipt Date: 20110204
  Transmission Date: 20110831
  Serious: Yes (Hospitalization)
  Sender: FDA-Public Use
  Company Number: FR-JNJFOC-20110202211

PATIENT
  Age: 41 Year
  Sex: Female

DRUGS (9)
  1. LYSANXIA [Concomitant]
  2. REMICADE [Suspect]
     Route: 042
  3. ZOLOFT [Suspect]
     Dosage: FOR SEVERAL YEARS
     Route: 048
  4. STILNOX [Concomitant]
  5. ATENOLOL [Concomitant]
  6. REMICADE [Suspect]
     Route: 042
  7. REMICADE [Suspect]
     Indication: PRODUCT USED FOR UNKNOWN INDICATION
     Route: 042
  8. REMICADE [Suspect]
     Dosage: 4TH INFUSION
     Route: 042
  9. ZOLOFT [Suspect]
     Indication: PRODUCT USED FOR UNKNOWN INDICATION
     Dosage: (5 TABLETS); PATIENT INCREASED THE DOSE HERSELF ON AN UNSPECIFIED DATE
     Route: 048

REACTIONS (2)
  - CYTOLYTIC HEPATITIS [None]
  - MENTAL DISORDER [None]
